FAERS Safety Report 9113610 (Version 1)
Quarter: 2013Q1

REPORT INFORMATION
  Report Type: Spontaneous
  Country: NL (occurrence: NL)
  Receive Date: 20130128
  Receipt Date: 20130128
  Transmission Date: 20140127
  Serious: Yes (Other)
  Sender: FDA-Public Use
  Company Number: NL-PFIZER INC-2013025947

PATIENT
  Age: 57 Year
  Sex: Female
  Weight: 75 kg

DRUGS (2)
  1. SULFASALAZINE [Suspect]
     Indication: RHEUMATOID ARTHRITIS
     Dosage: 1000 MG, 2X/DAY
     Dates: start: 20121011, end: 20121105
  2. METFORMINE ^MERCK^ [Concomitant]
     Dosage: 500 MG, 3X/DAY
     Dates: start: 201107

REACTIONS (2)
  - Visual acuity reduced [Recovered/Resolved]
  - Depression [Recovered/Resolved]
